FAERS Safety Report 11280021 (Version 2)
Quarter: 2015Q4

REPORT INFORMATION
  Report Type: Spontaneous
  Country: US (occurrence: US)
  Receive Date: 20150717
  Receipt Date: 20151016
  Transmission Date: 20160304
  Serious: No
  Sender: FDA-Public Use
  Company Number: US-GALDERMA-US15004561

PATIENT
  Age: 79 Year
  Sex: Female
  Weight: 55 kg

DRUGS (7)
  1. LATANOPROST. [Concomitant]
     Active Substance: LATANOPROST
     Indication: EYE DISORDER
     Route: 061
  2. CERAVE MOISTURZIER [Concomitant]
     Indication: DRY SKIN PROPHYLAXIS
     Route: 061
  3. SOOLANTRA [Suspect]
     Active Substance: IVERMECTIN
     Indication: ROSACEA
     Dosage: 1%
     Route: 061
     Dates: start: 20150526, end: 201506
  4. SOOLANTRA [Suspect]
     Active Substance: IVERMECTIN
     Route: 061
     Dates: start: 20150428, end: 20150526
  5. DORZOLAMIDE [Concomitant]
     Active Substance: DORZOLAMIDE
     Indication: EYE DISORDER
     Route: 061
  6. LOSARTAN. [Concomitant]
     Active Substance: LOSARTAN
     Indication: HYPERTENSION
     Dosage: 25 MG
     Route: 048
  7. CERAVE SOAP [Concomitant]
     Indication: THERAPEUTIC SKIN CARE TOPICAL
     Route: 061

REACTIONS (1)
  - Drug ineffective [Not Recovered/Not Resolved]

NARRATIVE: CASE EVENT DATE: 20150601
